FAERS Safety Report 4928551-1 (Version None)
Quarter: 2006Q1

REPORT INFORMATION
  Report Type: 
  Country: None (occurrence: None)
  Receive Date: 20060223
  Receipt Date: 20060201
  Transmission Date: 20060701
  Serious: No
  Sender: FDA-Public Use
  Company Number: US200602000757

PATIENT
  Age: 46 Year
  Sex: Female

DRUGS (6)
  1. CYMBALTA [Suspect]
     Indication: DEPRESSION
     Dosage: 60 MG, ORAL
     Route: 048
     Dates: start: 20060101, end: 20060101
  2. TOPAMAX /AUS/ (TOPIRAMATE) [Concomitant]
  3. WELCHOL [Concomitant]
  4. OXAZEPAM [Concomitant]
  5. ULTRAM [Concomitant]
  6. PRAVACID (LANSOPRAZOLE) [Concomitant]

REACTIONS (2)
  - ALANINE AMINOTRANSFERASE INCREASED [None]
  - ASPARTATE AMINOTRANSFERASE INCREASED [None]
